FAERS Safety Report 6965868-3 (Version None)
Quarter: 2010Q3

REPORT INFORMATION
  Report Type: 
  Country: None (occurrence: None)
  Receive Date: 20100903
  Receipt Date: 20100826
  Transmission Date: 20110219
  Serious: Yes (Hospitalization)
  Sender: FDA-Public Use
  Company Number: US-US-EMD SERONO, INC.-7013244

PATIENT
  Sex: Female

DRUGS (5)
  1. REBIF [Suspect]
     Indication: MULTIPLE SCLEROSIS
     Route: 058
     Dates: start: 20091029
  2. ADVIL LIQUI-GELS [Concomitant]
     Indication: PREMEDICATION
     Dates: end: 20100601
  3. ACETAMINOPHEN [Concomitant]
     Indication: PREMEDICATION
     Dates: start: 20100601
  4. GABAPENTIN [Concomitant]
     Indication: RESTLESS LEGS SYNDROME
  5. AMBIEN [Concomitant]
     Indication: SLEEP APNOEA SYNDROME

REACTIONS (2)
  - ARTHRITIS [None]
  - HYPOAESTHESIA [None]
